FAERS Safety Report 10361780 (Version 1)
Quarter: 2014Q1

REPORT INFORMATION
  Report Type: Spontaneous
  Country: US (occurrence: None)
  Receive Date: 20140306
  Receipt Date: 20140306
  Transmission Date: 20141002
  Serious: Yes (Hospitalization, Other)
  Sender: FDA-Public Use
  Company Number: 163-21880-13080124

PATIENT
  Age: 60 Year
  Sex: Female
  Weight: 85.8 kg

DRUGS (3)
  1. REVLIMID (LENALIDOMIDE) (25 MILLIGRAM, CAPSULES) [Suspect]
     Indication: PLASMA CELL MYELOMA
     Dosage: 25 MG, 21 IN 28 D
     Route: 048
     Dates: start: 20130709, end: 20130727
  2. MLN/PLACEBO [Suspect]
     Indication: PLASMA CELL MYELOMA
     Dosage: 3 IN 28 D
     Route: 048
     Dates: start: 20130709, end: 20130723
  3. DEXAMETHASONE [Suspect]
     Indication: PLASMA CELL MYELOMA
     Route: 048
     Dates: start: 20130709, end: 20130723

REACTIONS (2)
  - Plasmacytoma [None]
  - Spinal fracture [None]
